FAERS Safety Report 15645086 (Version 5)
Quarter: 2020Q3

REPORT INFORMATION
  Report Type: Report from Study
  Country: None (occurrence: AU)
  Receive Date: 20181121
  Receipt Date: 20190123
  Transmission Date: 20201105
  Serious: Yes (Hospitalization)
  Sender: FDA-Public Use
  Company Number: AU-ABBVIE-18P-008-2528414-00

PATIENT
  Age: 58 Year
  Sex: Male
  Weight: 79.8 kg

DRUGS (22)
  1. FILGRASTIM [Concomitant]
     Active Substance: FILGRASTIM
     Dates: start: 20181019, end: 20181019
  2. FILGRASTIM [Concomitant]
     Active Substance: FILGRASTIM
     Dates: start: 20181023, end: 20181025
  3. POTASSIUM CHLORIDE. [Concomitant]
     Active Substance: POTASSIUM CHLORIDE
     Indication: BLOOD POTASSIUM DECREASED
     Dates: start: 20181022, end: 20181024
  4. BACTROBAN [Concomitant]
     Active Substance: MUPIROCIN\MUPIROCIN CALCIUM
     Indication: ERYTHEMA
     Dates: start: 20180923, end: 20180928
  5. GA101 [Suspect]
     Active Substance: OBINUTUZUMAB
     Indication: B-CELL LYMPHOMA
     Dosage: DAY 1, 8, 15 OF C1 AND ON DAY 1 OF C2 TO 6. MOST RECENT DOSE PRIOR TO AE ONSET;03 OCT 2018
     Route: 042
     Dates: start: 20180813
  6. AUGMENTIN DUO FORTE [Concomitant]
     Active Substance: AMOXICILLIN\CLAVULANATE POTASSIUM
     Indication: ERYTHEMA
     Dates: start: 20180923, end: 20181002
  7. AUGMENTIN DUO FORTE [Concomitant]
     Active Substance: AMOXICILLIN\CLAVULANATE POTASSIUM
     Dates: start: 20181020, end: 20181021
  8. FILGRASTIM [Concomitant]
     Active Substance: FILGRASTIM
     Indication: NEUTROPENIA
     Dates: start: 20180927, end: 20180927
  9. FILGRASTIM [Concomitant]
     Active Substance: FILGRASTIM
     Dates: start: 20181102, end: 20181103
  10. GENTAMYCIN [Concomitant]
     Active Substance: GENTAMICIN
     Indication: PYREXIA
     Dates: start: 20181021, end: 20181021
  11. PARACETAMOL [Concomitant]
     Active Substance: ACETAMINOPHEN
     Indication: ARTHRALGIA
  12. SODIUM PHOSPHATE [Concomitant]
     Active Substance: SODIUM PHOSPHATE
     Indication: BLOOD SODIUM DECREASED
     Dates: start: 20181022, end: 20181025
  13. VALTREX [Concomitant]
     Active Substance: VALACYCLOVIR HYDROCHLORIDE
     Indication: ANTIVIRAL PROPHYLAXIS
     Dates: start: 20180816, end: 20181021
  14. PARACETAMOL [Concomitant]
     Active Substance: ACETAMINOPHEN
     Indication: PYREXIA
     Dates: start: 20180923
  15. VENETOCLAX. [Suspect]
     Active Substance: VENETOCLAX
     Indication: B-CELL LYMPHOMA
     Dosage: MOST RECENT DOSE PRIOR TO AE ONSET ON 19 OCT 2018
     Route: 048
     Dates: start: 20180813
  16. FILGRASTIM [Concomitant]
     Active Substance: FILGRASTIM
     Dates: start: 20181021, end: 20181021
  17. FILGRASTIM [Concomitant]
     Active Substance: FILGRASTIM
     Dates: start: 20181108, end: 20181111
  18. POLATUZUMAB VEDOTIN. [Suspect]
     Active Substance: POLATUZUMAB VEDOTIN
     Indication: B-CELL LYMPHOMA
     Dosage: MOST RECENT DOSE PRIOR TO AE ONSET ON 03 OCT 2018
     Route: 042
     Dates: start: 20180813
  19. ALLOPURINOL. [Concomitant]
     Active Substance: ALLOPURINOL
     Indication: PROPHYLAXIS
     Dates: start: 20180727, end: 20181003
  20. SODIUM BICARB MOUTHWASH [Concomitant]
     Indication: PROPHYLAXIS
     Dates: start: 20180819
  21. OSELTAMIVIR [Concomitant]
     Active Substance: OSELTAMIVIR
     Indication: PYREXIA
     Dates: start: 20181021, end: 20181022
  22. VALTREX [Concomitant]
     Active Substance: VALACYCLOVIR HYDROCHLORIDE
     Indication: ANTIVIRAL PROPHYLAXIS
     Dates: start: 20181025

REACTIONS (1)
  - Cellulitis [Recovered/Resolved]

NARRATIVE: CASE EVENT DATE: 20181020
